FAERS Safety Report 16118280 (Version 1)
Quarter: 2019Q1

REPORT INFORMATION
  Report Type: Spontaneous
  Country: FR (occurrence: FR)
  Receive Date: 20190326
  Receipt Date: 20190326
  Transmission Date: 20190418
  Serious: Yes (Hospitalization)
  Sender: FDA-Public Use
  Company Number: PHHY2019FR062757

PATIENT
  Age: 38 Year
  Sex: Female
  Weight: 50.2 kg

DRUGS (3)
  1. RISPERIDONE. [Suspect]
     Active Substance: RISPERIDONE
     Indication: TOXICITY TO VARIOUS AGENTS
     Dosage: 10 MG, 1 TOTAL
     Route: 048
     Dates: start: 20190220, end: 20190220
  2. TERALITHE [Suspect]
     Active Substance: LITHIUM CARBONATE
     Indication: TOXICITY TO VARIOUS AGENTS
     Dosage: 8000 MG, 1 TOTAL
     Route: 048
     Dates: start: 20190220, end: 20190220
  3. CLOMIPRAMINE GENERES [Suspect]
     Active Substance: CLOMIPRAMINE
     Indication: TOXICITY TO VARIOUS AGENTS
     Dosage: 750 MG, 1 TOTAL
     Route: 048
     Dates: start: 20190220, end: 20190220

REACTIONS (3)
  - Toxicity to various agents [Recovered/Resolved]
  - Sinus tachycardia [Recovered/Resolved]
  - Coma [Recovered/Resolved]

NARRATIVE: CASE EVENT DATE: 20190220
